FAERS Safety Report 20830079 (Version 1)
Quarter: 2022Q2

REPORT INFORMATION
  Report Type: Spontaneous
  Country: US (occurrence: US)
  Receive Date: 20220514
  Receipt Date: 20220514
  Transmission Date: 20220721
  Serious: No
  Sender: FDA-Public Use
  Company Number: US-ELI_LILLY_AND_COMPANY-US202205004974

PATIENT
  Sex: Female

DRUGS (2)
  1. HUMULIN N [Suspect]
     Active Substance: INSULIN HUMAN
     Indication: Gestational diabetes
     Dosage: 5 U, BID (EVERY MORNING AND EVERY NIGHT AT BEDTIME)
     Route: 058
  2. HUMULIN N [Suspect]
     Active Substance: INSULIN HUMAN
     Dosage: 34 U, BID (EVERY MORNING AND EVERY NIGHT AT BEDTIME)
     Route: 058

REACTIONS (1)
  - Maternal exposure during pregnancy [Unknown]
